FAERS Safety Report 17005515 (Version 2)
Quarter: 2020Q2

REPORT INFORMATION
  Report Type: Spontaneous
  Country: US (occurrence: US)
  Receive Date: 20191107
  Receipt Date: 20200414
  Transmission Date: 20200713
  Serious: Yes (Hospitalization, Other)
  Sender: FDA-Public Use
  Company Number: US-ASTRAZENECA-2019SF55926

PATIENT
  Age: 72 Year
  Sex: Female
  Weight: 67.1 kg

DRUGS (77)
  1. TRAVATAN Z [Concomitant]
     Active Substance: TRAVOPROST
     Indication: OCULAR HYPERTENSION
     Dates: start: 2010
  2. MEDROXYPROGESTERONE [Concomitant]
     Active Substance: MEDROXYPROGESTERONE
  3. FOLIC ACID. [Concomitant]
     Active Substance: FOLIC ACID
  4. PREDNISONE. [Concomitant]
     Active Substance: PREDNISONE
  5. IMIQUIMOD. [Concomitant]
     Active Substance: IMIQUIMOD
  6. PENICILLIN [Concomitant]
     Active Substance: PENICILLIN
  7. ENTEX T [Concomitant]
     Active Substance: GUAIFENESIN\PSEUDOEPHEDRINE HYDROCHLORIDE
  8. LIDOCAINE. [Concomitant]
     Active Substance: LIDOCAINE
  9. METOCLOPRAMIDE. [Concomitant]
     Active Substance: METOCLOPRAMIDE
  10. MAGNESIUM [Concomitant]
     Active Substance: MAGNESIUM
  11. METHYLPREDNISOLONE. [Concomitant]
     Active Substance: METHYLPREDNISOLONE
  12. ZEMPLAR [Concomitant]
     Active Substance: PARICALCITOL
  13. LOVENOX [Concomitant]
     Active Substance: ENOXAPARIN SODIUM
  14. ISOSORBIDE DINITRATE. [Concomitant]
     Active Substance: ISOSORBIDE DINITRATE
  15. KLOR-CON [Concomitant]
     Active Substance: POTASSIUM CHLORIDE
     Indication: HYPOKALAEMIA
     Dates: start: 2011, end: 2014
  16. RANITIDINE. [Concomitant]
     Active Substance: RANITIDINE
     Dates: start: 2013, end: 2018
  17. CLINDAMYCIN. [Concomitant]
     Active Substance: CLINDAMYCIN
  18. BRIMONIDINE [Concomitant]
     Active Substance: BRIMONIDINE TARTRATE
  19. FAMOTIDINE. [Concomitant]
     Active Substance: FAMOTIDINE
  20. NITROFURANTOIN. [Concomitant]
     Active Substance: NITROFURANTOIN
  21. PROPOXYPHEN [Concomitant]
  22. AMLODIPINE [Concomitant]
     Active Substance: AMLODIPINE BESYLATE
     Indication: HYPERTENSION
     Dates: start: 2004
  23. FUROSEMIDE. [Concomitant]
     Active Substance: FUROSEMIDE
     Indication: HYPERTENSION
     Dates: start: 2004
  24. CONDYLOX [Concomitant]
     Active Substance: PODOFILOX
     Indication: SKIN PAPILLOMA
     Dates: start: 2010
  25. CEPHALEXIN. [Concomitant]
     Active Substance: CEPHALEXIN
     Dates: start: 2013, end: 2018
  26. INTEGRA [Concomitant]
     Active Substance: DIETARY SUPPLEMENT
  27. ATROPINE. [Concomitant]
     Active Substance: ATROPINE
  28. TRIFLURIDINE. [Concomitant]
     Active Substance: TRIFLURIDINE
  29. NYSTATIN. [Concomitant]
     Active Substance: NYSTATIN
  30. PROTONIX [Suspect]
     Active Substance: PANTOPRAZOLE SODIUM
     Indication: GASTROOESOPHAGEAL REFLUX DISEASE
     Route: 065
  31. PROTONIX [Suspect]
     Active Substance: PANTOPRAZOLE SODIUM
     Indication: GASTROOESOPHAGEAL REFLUX DISEASE
     Dosage: GENERIC40.0MG UNKNOWN
     Route: 065
     Dates: start: 2018
  32. LISINOPRIL. [Concomitant]
     Active Substance: LISINOPRIL
     Indication: HYPERTENSION
     Dates: start: 1997
  33. FUROSEMIDE. [Concomitant]
     Active Substance: FUROSEMIDE
     Indication: FLUID RETENTION
     Dates: start: 2004
  34. VYTORIN [Concomitant]
     Active Substance: EZETIMIBE\SIMVASTATIN
     Indication: BLOOD CHOLESTEROL INCREASED
     Dates: start: 2000
  35. BONIVA [Concomitant]
     Active Substance: IBANDRONATE SODIUM
     Indication: BONE LOSS
     Dates: start: 2000
  36. HYDROXYCHLOROQUINE [Concomitant]
     Active Substance: HYDROXYCHLOROQUINE
  37. SUCRALFATE. [Concomitant]
     Active Substance: SUCRALFATE
  38. FLUVIRIN NOS [Concomitant]
     Active Substance: INFLUENZA VIRUS VACCINE
  39. TUMS [Concomitant]
     Active Substance: CALCIUM CARBONATE
  40. CELEBREX [Concomitant]
     Active Substance: CELECOXIB
  41. DOXYCYCLINE. [Concomitant]
     Active Substance: DOXYCYCLINE
  42. AMOXICILLIN. [Concomitant]
     Active Substance: AMOXICILLIN
     Dates: start: 2013, end: 2018
  43. TIMOLOL. [Concomitant]
     Active Substance: TIMOLOL
  44. MIRTAZAPINE. [Concomitant]
     Active Substance: MIRTAZAPINE
  45. FERROUS FUMARATE [Concomitant]
     Active Substance: FERROUS FUMARATE
  46. ACYCLOVIR. [Concomitant]
     Active Substance: ACYCLOVIR
  47. ZOFRAN [Concomitant]
     Active Substance: ONDANSETRON HYDROCHLORIDE
  48. VITAMIN D [Concomitant]
     Active Substance: VITAMIN D NOS
  49. ACIPHEX [Suspect]
     Active Substance: RABEPRAZOLE SODIUM
     Indication: GASTROOESOPHAGEAL REFLUX DISEASE
     Dosage: 20.0MG UNKNOWN
     Route: 065
     Dates: start: 20080107, end: 20080629
  50. WARFARIN [Concomitant]
     Active Substance: WARFARIN
     Indication: BLOOD VISCOSITY ABNORMAL
     Dates: start: 2013
  51. MULTIGEN [Concomitant]
     Indication: ANAEMIA
     Dates: start: 2010
  52. HYDROCODONE BITARTRATE AND ACETAMINOPHEN [Concomitant]
     Active Substance: ACETAMINOPHEN\HYDROCODONE BITARTRATE
     Dates: start: 2013, end: 2018
  53. METHOTREXATE. [Concomitant]
     Active Substance: METHOTREXATE
  54. ALBUTEROL. [Concomitant]
     Active Substance: ALBUTEROL
  55. NEPHRO VITE RX [Concomitant]
     Active Substance: ASCORBIC ACID\BIOTIN\CALCIUM PANTOTHENATE\CYANOCOBALAMIN\FOLIC ACID\NIACINAMIDE\PYRIDOXINE HYDROCHLORIDE\RIBOFLAVIN\THIAMINE MONONITRATE
  56. HYDRALAZINE [Concomitant]
     Active Substance: HYDRALAZINE HYDROCHLORIDE
  57. CLONIDINE. [Concomitant]
     Active Substance: CLONIDINE
  58. NEXIUM [Suspect]
     Active Substance: ESOMEPRAZOLE MAGNESIUM
     Indication: GASTROOESOPHAGEAL REFLUX DISEASE
     Dosage: 40.0MG UNKNOWN
     Route: 048
     Dates: start: 20100427, end: 20140330
  59. PROTONIX [Suspect]
     Active Substance: PANTOPRAZOLE SODIUM
     Indication: GASTROOESOPHAGEAL REFLUX DISEASE
     Dosage: GENERIC40.0MG UNKNOWN
     Route: 065
     Dates: start: 20150717, end: 20170414
  60. PROTONIX [Suspect]
     Active Substance: PANTOPRAZOLE SODIUM
     Indication: GASTROOESOPHAGEAL REFLUX DISEASE
     Dosage: GENERIC40.0MG UNKNOWN
     Route: 065
     Dates: start: 20170414, end: 20170829
  61. CARVEDILOL. [Concomitant]
     Active Substance: CARVEDILOL
     Indication: HYPERTENSION
     Dates: start: 2013
  62. CARVEDILOL. [Concomitant]
     Active Substance: CARVEDILOL
     Indication: CARDIAC FAILURE
     Dates: start: 2013
  63. ESTROGEN [Concomitant]
     Active Substance: ESTROGENS
  64. ISOSORBIDE. [Concomitant]
     Active Substance: ISOSORBIDE
  65. LATANOPROST. [Concomitant]
     Active Substance: LATANOPROST
  66. ONDANSETRON [Concomitant]
     Active Substance: ONDANSETRON
  67. ALLEGRA [Concomitant]
     Active Substance: FEXOFENADINE HYDROCHLORIDE
  68. DEMEROL [Concomitant]
     Active Substance: MEPERIDINE HYDROCHLORIDE
  69. VERSED [Concomitant]
     Active Substance: MIDAZOLAM HYDROCHLORIDE
  70. BIDIL [Concomitant]
     Active Substance: HYDRALAZINE HYDROCHLORIDE\ISOSORBIDE DINITRATE
  71. CHERATUSSIN [Concomitant]
     Active Substance: AMMONIUM CHLORIDE\DEXTROMETHORPHAN\SODIUM CITRATE
  72. PROTONIX [Suspect]
     Active Substance: PANTOPRAZOLE SODIUM
     Indication: GASTROOESOPHAGEAL REFLUX DISEASE
     Dosage: GENERIC40.0MG UNKNOWN
     Route: 065
     Dates: start: 20170829, end: 2018
  73. ACETAMINOPHEN. [Concomitant]
     Active Substance: ACETAMINOPHEN
     Indication: PAIN
     Dates: start: 1990
  74. MUPIROCIN. [Concomitant]
     Active Substance: MUPIROCIN
  75. SIMVASTATIN. [Concomitant]
     Active Substance: SIMVASTATIN
  76. PRADAXA [Concomitant]
     Active Substance: DABIGATRAN ETEXILATE MESYLATE
  77. ELIQUIS [Concomitant]
     Active Substance: APIXABAN

REACTIONS (6)
  - Hyperparathyroidism secondary [Unknown]
  - Renal failure [Unknown]
  - End stage renal disease [Not Recovered/Not Resolved]
  - Nephrogenic anaemia [Unknown]
  - Acute kidney injury [Not Recovered/Not Resolved]
  - Chronic kidney disease [Not Recovered/Not Resolved]

NARRATIVE: CASE EVENT DATE: 2012
